FAERS Safety Report 9540826 (Version 3)
Quarter: 2014Q1

REPORT INFORMATION
  Report Type: Report from Study
  Country: CA (occurrence: CA)
  Receive Date: 20130920
  Receipt Date: 20140124
  Transmission Date: 20141002
  Serious: Yes (Other)
  Sender: FDA-Public Use
  Company Number: PHHY2013CA027726

PATIENT
  Sex: Female

DRUGS (4)
  1. ZOMETA [Suspect]
     Indication: BREAST CANCER METASTATIC
     Dosage: 4 MG, EVERY 4 WEEKS
     Route: 042
     Dates: start: 20130308
  2. ZOMETA [Suspect]
     Dosage: 4 MG, EVERY 28 DAYS
     Route: 042
  3. CHEMOTHERAPEUTICS [Concomitant]
     Dosage: UNK UKN, UNK
  4. ANTIBIOTICS [Concomitant]

REACTIONS (3)
  - Sepsis [Unknown]
  - Weight decreased [Unknown]
  - Malaise [Unknown]
